FAERS Safety Report 5870633-4 (Version None)
Quarter: 2008Q3

REPORT INFORMATION
  Report Type: 
  Country: None (occurrence: None)
  Receive Date: 20080904
  Receipt Date: 20080829
  Transmission Date: 20090109
  Serious: Yes (Life-Threatening)
  Sender: FDA-Public Use
  Company Number: B0535570A

PATIENT
  Age: 25 Year
  Sex: Female

DRUGS (10)
  1. ZINACEF [Suspect]
     Indication: PROPHYLAXIS
     Route: 042
     Dates: start: 20010727
  2. LOPERAMIDE HCL [Concomitant]
     Dosage: 2MG TWICE PER DAY
     Route: 048
  3. PREDNISOLON [Concomitant]
     Dosage: 5MG FOUR TIMES PER DAY
     Route: 048
  4. CRANBERRY [Concomitant]
     Route: 048
  5. FUROSEMIDE [Concomitant]
     Dosage: 40MG PER DAY
     Route: 048
  6. ATENOLOL [Concomitant]
     Dosage: 50MG PER DAY
     Route: 048
  7. DRIDASE [Concomitant]
     Dosage: 2.5MG PER DAY
     Route: 048
  8. ASCORBIC ACID [Concomitant]
     Dosage: 500MG PER DAY
     Route: 048
  9. DEPAKENE [Concomitant]
     Dosage: 500MG PER DAY
     Route: 048
  10. NEORAL [Concomitant]
     Route: 048

REACTIONS (5)
  - ANAPHYLACTIC REACTION [None]
  - ANGIOEDEMA [None]
  - ANXIETY [None]
  - SKIN DISCOLOURATION [None]
  - VASODILATION PROCEDURE [None]
